FAERS Safety Report 6539561-5 (Version None)
Quarter: 2010Q1

REPORT INFORMATION
  Report Type: 
  Country: None (occurrence: None)
  Receive Date: 20100115
  Receipt Date: 20100104
  Transmission Date: 20100710
  Serious: Yes (Other)
  Sender: FDA-Public Use
  Company Number: B0625595A

PATIENT
  Age: 65 Year
  Sex: Male

DRUGS (1)
  1. RANITIDINE [Suspect]

REACTIONS (4)
  - HYPOAESTHESIA [None]
  - NEUROPATHY PERIPHERAL [None]
  - PAIN [None]
  - SCIATIC NERVE INJURY [None]
